FAERS Safety Report 16582993 (Version 1)
Quarter: 2019Q3

REPORT INFORMATION
  Report Type: Spontaneous
  Country: IT (occurrence: IT)
  Receive Date: 20190717
  Receipt Date: 20190717
  Transmission Date: 20191004
  Serious: Yes (Hospitalization)
  Sender: FDA-Public Use
  Company Number: IT-TEVA-2019-IT-1077373

PATIENT
  Age: 13 Year
  Sex: Female
  Weight: 50 kg

DRUGS (2)
  1. CETIRIZINE [Suspect]
     Active Substance: CETIRIZINE HYDROCHLORIDE
     Indication: POISONING
     Route: 048
     Dates: start: 20190624, end: 20190624
  2. CHLORDIAZEPOXIDE. [Suspect]
     Active Substance: CHLORDIAZEPOXIDE
     Indication: POISONING
     Route: 048
     Dates: start: 20190624, end: 20190624

REACTIONS (2)
  - Hyporesponsive to stimuli [Unknown]
  - Poisoning [Unknown]

NARRATIVE: CASE EVENT DATE: 20190624
